FAERS Safety Report 9082822 (Version 1)
Quarter: 2013Q1

REPORT INFORMATION
  Report Type: Report from Study
  Country: US (occurrence: US)
  Receive Date: 20130130
  Receipt Date: 20130130
  Transmission Date: 20140127
  Serious: No
  Sender: FDA-Public Use
  Company Number: US-ABBOTT-12P-163-0953707-00

PATIENT
  Age: 41 Year
  Sex: Female

DRUGS (7)
  1. HUMIRA 40 MG/0.8 ML PEN [Suspect]
     Indication: CROHN^S DISEASE
     Dates: start: 20120611, end: 20120611
  2. HUMIRA 40 MG/0.8 ML PEN [Suspect]
     Dates: start: 20120612, end: 20120612
  3. HUMIRA 40 MG/0.8 ML PEN [Suspect]
     Dates: start: 20120626, end: 20120626
  4. HUMIRA 40 MG/0.8 ML PEN [Suspect]
  5. UNKNOWN MEDICATION [Concomitant]
     Indication: HYPERTENSION
  6. VITAMIN B-12 [Concomitant]
     Indication: PRODUCT USED FOR UNKNOWN INDICATION
  7. VITAMIN C [Concomitant]
     Indication: PRODUCT USED FOR UNKNOWN INDICATION

REACTIONS (7)
  - Dizziness [Not Recovered/Not Resolved]
  - Fatigue [Not Recovered/Not Resolved]
  - Skin discolouration [Not Recovered/Not Resolved]
  - Clumsiness [Not Recovered/Not Resolved]
  - Dysarthria [Not Recovered/Not Resolved]
  - Oedema peripheral [Not Recovered/Not Resolved]
  - Abdominal pain [Not Recovered/Not Resolved]
